FAERS Safety Report 21052212 (Version 1)
Quarter: 2022Q3

REPORT INFORMATION
  Report Type: Report from Study
  Country: US (occurrence: US)
  Receive Date: 20220707
  Receipt Date: 20220707
  Transmission Date: 20221027
  Serious: No
  Sender: FDA-Public Use
  Company Number: US-NOVARTISTESTPH-NVSC2022US153994

PATIENT
  Sex: Female

DRUGS (2)
  1. ILARIS [Suspect]
     Active Substance: CANAKINUMAB
     Indication: Cold urticaria
     Dosage: 150 MG, EVERY 8 WEEKS
     Route: 058
     Dates: start: 20191230
  2. ILARIS [Suspect]
     Active Substance: CANAKINUMAB
     Indication: Urticaria thermal

REACTIONS (1)
  - Tooth abscess [Unknown]
